FAERS Safety Report 17927314 (Version 1)
Quarter: 2020Q2

REPORT INFORMATION
  Report Type: Spontaneous
  Country: US (occurrence: US)
  Receive Date: 20200623
  Receipt Date: 20200623
  Transmission Date: 20200714
  Serious: No
  Sender: FDA-Public Use
  Company Number: US-GLOBAL BLOOD THERAPEUTICS INC-US-GBT-20-00813

PATIENT

DRUGS (1)
  1. OXBRYTA [Suspect]
     Active Substance: VOXELOTOR
     Indication: PRODUCT USED FOR UNKNOWN INDICATION

REACTIONS (4)
  - Haemoglobin increased [Recovered/Resolved]
  - Blood bilirubin decreased [Recovered/Resolved]
  - Sickle cell anaemia with crisis [Unknown]
  - Anaemia [Unknown]

NARRATIVE: CASE EVENT DATE: 2020
